FAERS Safety Report 7928655-5 (Version None)
Quarter: 2011Q4

REPORT INFORMATION
  Report Type: 
  Country: None (occurrence: None)
  Receive Date: 20111118
  Receipt Date: 20111114
  Transmission Date: 20120403
  Serious: Yes (Other)
  Sender: FDA-Public Use
  Company Number: US-ABBOTT-11P-163-0868373-00

PATIENT
  Sex: Female
  Weight: 59.474 kg

DRUGS (4)
  1. UNKNOWN BETA BLOCKER [Concomitant]
     Indication: HEART RATE IRREGULAR
  2. HUMIRA [Suspect]
     Indication: RHEUMATOID ARTHRITIS
     Route: 058
     Dates: start: 20110601
  3. ARAVA [Concomitant]
     Indication: PRODUCT USED FOR UNKNOWN INDICATION
  4. UNKNOWN MEDICATION [Concomitant]
     Indication: THYROID DISORDER

REACTIONS (4)
  - NASAL OEDEMA [None]
  - SINUSITIS [None]
  - BURSA DISORDER [None]
  - RESPIRATORY TRACT CONGESTION [None]
